FAERS Safety Report 4588671-0 (Version None)
Quarter: 2005Q1

REPORT INFORMATION
  Report Type: 
  Country: None (occurrence: None)
  Receive Date: 20050222
  Receipt Date: 20050210
  Transmission Date: 20050727
  Serious: Yes (Other)
  Sender: FDA-Public Use
  Company Number: US-MERCK-0502USA01916

PATIENT
  Age: 47 Year
  Sex: Male

DRUGS (4)
  1. PEPCID [Suspect]
     Route: 048
     Dates: start: 19970101
  2. MORPHINE [Concomitant]
     Indication: PAIN
     Route: 048
  3. VALIUM [Concomitant]
     Indication: PAIN
     Route: 048
  4. TAGAMET [Concomitant]
     Indication: GASTRIC DISORDER
     Route: 065

REACTIONS (1)
  - PANCREATITIS [None]
